FAERS Safety Report 8839667 (Version 3)
Quarter: 2013Q2

REPORT INFORMATION
  Report Type: Report from Study
  Country: US (occurrence: US)
  Receive Date: 20121015
  Receipt Date: 20130430
  Transmission Date: 20140414
  Serious: Yes (Hospitalization)
  Sender: FDA-Public Use
  Company Number: PHEH2012US020041

PATIENT
  Age: 59 Year
  Sex: Female
  Weight: 91 kg

DRUGS (2)
  1. GILENYA [Suspect]
     Indication: MULTIPLE SCLEROSIS
     Dosage: 0.5 MG, QD
     Route: 048
     Dates: start: 20121010, end: 20121010
  2. SYNTHROID [Concomitant]

REACTIONS (3)
  - Electrocardiogram QT prolonged [Recovered/Resolved]
  - Blood pressure decreased [Unknown]
  - Sinus bradycardia [Unknown]
